FAERS Safety Report 5089246-X (Version None)
Quarter: 2006Q3

REPORT INFORMATION
  Report Type: 
  Country: None (occurrence: None)
  Receive Date: 20060825
  Receipt Date: 20060815
  Transmission Date: 20061208
  Serious: Yes (Other)
  Sender: FDA-Public Use
  Company Number: DE-ABBOTT-06P-062-0341011-00

PATIENT
  Age: 7 Month
  Sex: Male

DRUGS (1)
  1. VALPROIC ACID [Suspect]
     Indication: FEBRILE CONVULSION

REACTIONS (4)
  - COAGULATION FACTOR DECREASED [None]
  - COAGULATION FACTOR XIII LEVEL DECREASED [None]
  - PLATELET FUNCTION TEST ABNORMAL [None]
  - VITAMIN K DEFICIENCY [None]
